FAERS Safety Report 23012562 (Version 6)
Quarter: 2024Q4

REPORT INFORMATION
  Report Type: Spontaneous
  Country: US (occurrence: US)
  Receive Date: 20230930
  Receipt Date: 20241220
  Transmission Date: 20250115
  Serious: No
  Sender: SANOFI AVENTIS
  Company Number: US-SA-SAC20230928000518

PATIENT
  Age: 26 Year
  Sex: Female

DRUGS (3)
  1. DUPIXENT [Suspect]
     Active Substance: DUPILUMAB
     Indication: Dermatitis atopic
     Dosage: 300 MG, QOW
     Route: 058
     Dates: start: 202306
  2. DUPIXENT [Suspect]
     Active Substance: DUPILUMAB
     Indication: Eczema
     Dosage: 600 MG, 1X
     Route: 058
     Dates: start: 20231211, end: 20231211
  3. DUPIXENT [Suspect]
     Active Substance: DUPILUMAB
     Dosage: 300 MG, QOW
     Route: 058
     Dates: start: 20240115

REACTIONS (16)
  - Fatigue [Unknown]
  - Decreased appetite [Unknown]
  - Muscle spasms [Unknown]
  - Rash macular [Unknown]
  - Skin irritation [Unknown]
  - Injection site pruritus [Recovered/Resolved]
  - Arthralgia [Unknown]
  - Eczema [Unknown]
  - Initial insomnia [Unknown]
  - Chapped lips [Unknown]
  - Sensitive skin [Unknown]
  - Product dose omission in error [Unknown]
  - Therapeutic response shortened [Unknown]
  - Therapeutic product effect incomplete [Unknown]
  - Rash [Unknown]
  - Dermatitis atopic [Unknown]

NARRATIVE: CASE EVENT DATE: 20230901
